FAERS Safety Report 6520008-X (Version None)
Quarter: 2009Q4

REPORT INFORMATION
  Report Type: 
  Country: None (occurrence: None)
  Receive Date: 20091229
  Receipt Date: 20091221
  Transmission Date: 20100525
  Serious: Yes (Other)
  Sender: FDA-Public Use
  Company Number: TW-ASTRAZENECA-2007AP08084

PATIENT
  Age: 57 Year
  Sex: Male

DRUGS (2)
  1. CRESTOR [Suspect]
     Indication: HYPERCHOLESTEROLAEMIA
     Route: 048
     Dates: start: 20071001
  2. LOSARTAN [Concomitant]
     Indication: HYPERTENSION

REACTIONS (1)
  - THROMBOCYTOPENIC PURPURA [None]
